FAERS Safety Report 4878310-3 (Version None)
Quarter: 2006Q1

REPORT INFORMATION
  Report Type: 
  Country: None (occurrence: None)
  Receive Date: 20060111
  Receipt Date: 20050926
  Transmission Date: 20060701
  Serious: Yes (Death, Hospitalization)
  Sender: FDA-Public Use
  Company Number: US-MERCK-0509USA03785

PATIENT
  Age: 59 Year
  Sex: Female
  Weight: 129 kg

DRUGS (2)
  1. VIOXX [Suspect]
     Indication: BACK PAIN
     Route: 048
  2. VIOXX [Suspect]
     Indication: PAIN IN EXTREMITY
     Route: 048

REACTIONS (7)
  - ASTHENIA [None]
  - CARDIAC ARREST [None]
  - CARDIAC FAILURE CONGESTIVE [None]
  - DIABETES MELLITUS NON-INSULIN-DEPENDENT [None]
  - PAIN [None]
  - PULMONARY EMBOLISM [None]
  - SWELLING [None]
